FAERS Safety Report 14432767 (Version 2)
Quarter: 2018Q1

REPORT INFORMATION
  Report Type: Spontaneous
  Country: US (occurrence: US)
  Receive Date: 20180124
  Receipt Date: 20180322
  Transmission Date: 20180509
  Serious: Yes (Other)
  Sender: FDA-Public Use
  Company Number: US-PFIZER INC-2018029275

PATIENT
  Age: 65 Year
  Sex: Female

DRUGS (2)
  1. BD PEN NEEDL MIS [Concomitant]
     Dosage: UNK, (32G ? 4)
  2. IBRANCE [Suspect]
     Active Substance: PALBOCICLIB
     Indication: BREAST CANCER
     Dosage: 100 MG, CYCLIC (DAILY WITH FOOD FOR 21 ON THEN 7 DAYS OFF)
     Route: 048
     Dates: start: 20170724

REACTIONS (5)
  - Neutropenia [Recovered/Resolved]
  - Fatigue [Not Recovered/Not Resolved]
  - Flatulence [Not Recovered/Not Resolved]
  - Overweight [Not Recovered/Not Resolved]
  - Liver function test increased [Recovered/Resolved]
